FAERS Safety Report 7321865-X (Version None)
Quarter: 2011Q1

REPORT INFORMATION
  Report Type: 
  Country: None (occurrence: None)
  Receive Date: 20110228
  Receipt Date: 20110216
  Transmission Date: 20110831
  Serious: Yes (Other)
  Sender: FDA-Public Use
  Company Number: PHHY2011GB12400

PATIENT
  Age: 88 Year
  Sex: Female

DRUGS (7)
  1. LEVOTHYROXINE SODIUM [Concomitant]
     Dosage: 25 UG, QD
     Route: 048
  2. ZOPICLONE [Concomitant]
     Dosage: 7.5 MG, QD
     Route: 048
  3. DIAZEPAM [Concomitant]
     Dosage: 2 MG, BID
  4. MIRTAZAPINE [Suspect]
     Dosage: 15 MG, QD
     Route: 048
  5. PRIADEL [Concomitant]
     Dosage: 5 ML, QD
  6. CO-CODAMOL [Concomitant]
     Route: 048
  7. ALENDRONIC ACID [Concomitant]
     Dosage: 70 MG, QW
     Route: 048

REACTIONS (1)
  - HYPONATRAEMIA [None]
